FAERS Safety Report 4318504-9 (Version None)
Quarter: 2004Q1

REPORT INFORMATION
  Report Type: 
  Country: None (occurrence: None)
  Receive Date: 20040318
  Receipt Date: 20040306
  Transmission Date: 20041129
  Serious: Yes (Other)
  Sender: FDA-Public Use
  Company Number: US-BRISTOL-MYERS SQUIBB COMPANY-12526422

PATIENT
  Age: 6 Year
  Sex: Female

DRUGS (3)
  1. CEFZIL [Suspect]
     Indication: INFECTION
     Route: 048
  2. ZYRTEC [Concomitant]
  3. INSULIN [Concomitant]

REACTIONS (1)
  - BLOOD GLUCOSE INCREASED [None]
